FAERS Safety Report 23710358 (Version 1)
Quarter: 2024Q2

REPORT INFORMATION
  Report Type: Spontaneous
  Country: SA (occurrence: None)
  Receive Date: 20240405
  Receipt Date: 20240405
  Transmission Date: 20240715
  Serious: Yes (Hospitalization, Other)
  Sender: FDA-Public Use
  Company Number: SA-ACS-20240114

PATIENT
  Age: 25 Year
  Sex: Female

DRUGS (5)
  1. CEFTRIAXONE [Suspect]
     Active Substance: CEFTRIAXONE\CEFTRIAXONE SODIUM
     Indication: Tonsillitis
     Route: 040
  2. FOLIC ACID [Concomitant]
     Active Substance: FOLIC ACID
  3. ACETAMINOPHEN [Concomitant]
     Active Substance: ACETAMINOPHEN
     Indication: Anaesthesia procedure
  4. IBUPROFEN [Concomitant]
     Active Substance: IBUPROFEN
     Indication: Anaesthesia procedure
  5. MORPHINE [Concomitant]
     Active Substance: MORPHINE
     Indication: Anaesthesia procedure

REACTIONS (1)
  - Fixed eruption [Recovered/Resolved]
